FAERS Safety Report 14833537 (Version 1)
Quarter: 2018Q2

REPORT INFORMATION
  Report Type: Spontaneous
  Country: DE (occurrence: DE)
  Receive Date: 20180501
  Receipt Date: 20180501
  Transmission Date: 20180711
  Serious: Yes (Hospitalization)
  Sender: FDA-Public Use
  Company Number: DE-PFIZER INC-2018177948

PATIENT
  Age: 69 Year
  Sex: Female

DRUGS (7)
  1. METAMIZOL [Concomitant]
     Active Substance: METAMIZOLE SODIUM
     Dosage: UNK
  2. TRIMIPRAMINE [Suspect]
     Active Substance: TRIMIPRAMINE
     Dosage: 100 MG, UNK
     Route: 065
  3. NEBILET [Suspect]
     Active Substance: NEBIVOLOL
     Dosage: 5 MG, UNK
     Route: 065
  4. OXYGESIC [Suspect]
     Active Substance: OXYCODONE
     Dosage: 20 MG, UNK
     Route: 065
  5. PANTOPRAZOLE [Suspect]
     Active Substance: PANTOPRAZOLE
     Dosage: 40 MG, UNK
     Route: 065
  6. SIMVASTATIN. [Concomitant]
     Active Substance: SIMVASTATIN
     Dosage: 20 MG, UNK
  7. TAVOR (LORAZEPAM) [Concomitant]
     Active Substance: LORAZEPAM
     Dosage: 5 MG, UNK

REACTIONS (3)
  - Condition aggravated [Unknown]
  - Constipation [Unknown]
  - Abdominal pain lower [Unknown]
